FAERS Safety Report 25942515 (Version 1)
Quarter: 2025Q4

REPORT INFORMATION
  Report Type: Report from Study
  Country: EU (occurrence: EU)
  Receive Date: 20251021
  Receipt Date: 20251021
  Transmission Date: 20260117
  Serious: Yes (Hospitalization)
  Sender: ABBVIE
  Company Number: EU-ABBVIE-6490230

PATIENT
  Age: 78 Year
  Sex: Male

DRUGS (2)
  1. FOSCARBIDOPA\FOSLEVODOPA [Suspect]
     Active Substance: FOSCARBIDOPA\FOSLEVODOPA
     Indication: Parkinson^s disease
     Dosage: CRN: 0.3 ML/H; CR: 0.36 ML/H; CR: 0.4 ML/H; ED: 0.2 ML.. LAST ADMINISTRATION DATE: 2025
     Route: 058
     Dates: start: 20250916
  2. FOSCARBIDOPA\FOSLEVODOPA [Suspect]
     Active Substance: FOSCARBIDOPA\FOSLEVODOPA
     Dosage: FIRST ADMINISTRATION DATE: 2025 CR 0.25 ML/H, CRH 0.30 ML/H, CRN 0.20 ML/H ED 0.25 ML/H
     Route: 058

REACTIONS (3)
  - Akinesia [Recovering/Resolving]
  - Urinary tract infection [Recovering/Resolving]
  - Hallucination [Recovered/Resolved]

NARRATIVE: CASE EVENT DATE: 20250101
